APPROVED DRUG PRODUCT: CALCIUM GLUCEPTATE
Active Ingredient: CALCIUM GLUCEPTATE
Strength: EQ 90MG CALCIUM/5ML
Dosage Form/Route: INJECTABLE;INJECTION
Application: A083159 | Product #001
Applicant: ABBOTT LABORATORIES PHARMACEUTICAL PRODUCTS DIV
Approved: Approved Prior to Jan 1, 1982 | RLD: No | RS: No | Type: DISCN